FAERS Safety Report 7302062-0 (Version None)
Quarter: 2011Q1

REPORT INFORMATION
  Report Type: 
  Country: None (occurrence: None)
  Receive Date: 20110218
  Receipt Date: 20110215
  Transmission Date: 20110831
  Serious: Yes (Hospitalization)
  Sender: FDA-Public Use
  Company Number: US-ABBOTT-11P-163-0705615-00

PATIENT
  Sex: Male
  Weight: 80.812 kg

DRUGS (2)
  1. HUMIRA [Suspect]
     Indication: POLYARTHRITIS
     Dates: start: 20040101
  2. COUMADIN [Concomitant]
     Indication: PULMONARY EMBOLISM
     Dates: start: 20040101

REACTIONS (2)
  - ANXIETY [None]
  - PANIC ATTACK [None]
